FAERS Safety Report 6462108-9 (Version None)
Quarter: 2009Q4

REPORT INFORMATION
  Report Type: 
  Country: None (occurrence: None)
  Receive Date: 20091130
  Receipt Date: 20091120
  Transmission Date: 20100525
  Serious: Yes (Death)
  Sender: FDA-Public Use
  Company Number: GXKR2009NZ12688

PATIENT
  Age: 47 Year
  Sex: Male

DRUGS (7)
  1. SALBUTAMOL (NGX) [Suspect]
     Indication: ASTHMA
     Dosage: 2 DF (PUFFS), PRN
  2. SALBUTAMOL (NGX) [Suspect]
     Indication: DYSPNOEA
     Dosage: ENTIRE SALBUTAMOL INHALER
  3. SALBUTAMOL (NGX) [Suspect]
     Dosage: INCREASING DOSES OF INHALER
  4. ALBUTEROL SULFATE AUTOHALER [Suspect]
     Indication: ASTHMA
     Dosage: 2 DF (PUFFS), BID
  5. FLUTICASONE PROPIONATE [Concomitant]
     Indication: ASTHMA
     Dosage: 2 DF (PUFFS) , BID
  6. TIOTROPIUM BROMIDE [Concomitant]
     Indication: ASTHMA
     Route: 065
  7. IPRATROPIUM BROMIDE [Concomitant]
     Indication: ASTHMA
     Route: 065

REACTIONS (16)
  - BRONCHOSPASM [None]
  - CARDIAC FAILURE [None]
  - CONGESTIVE CARDIOMYOPATHY [None]
  - DYSPNOEA EXERTIONAL [None]
  - DYSPNOEA PAROXYSMAL NOCTURNAL [None]
  - EJECTION FRACTION DECREASED [None]
  - ELECTROCARDIOGRAM T WAVE INVERSION [None]
  - HEART SOUNDS ABNORMAL [None]
  - OBSTRUCTIVE AIRWAYS DISORDER [None]
  - OEDEMA PERIPHERAL [None]
  - ORTHOPNOEA [None]
  - PRODUCTIVE COUGH [None]
  - TACHYCARDIA [None]
  - TACHYPNOEA [None]
  - VENOUS PRESSURE JUGULAR INCREASED [None]
  - WHEEZING [None]
